FAERS Safety Report 4535292-1 (Version None)
Quarter: 2004Q4

REPORT INFORMATION
  Report Type: 
  Country: None (occurrence: None)
  Receive Date: 20041214
  Receipt Date: 20040924
  Transmission Date: 20050328
  Serious: No
  Sender: FDA-Public Use
  Company Number: 2004237350US

PATIENT
  Age: 41 Year
  Sex: Female
  Weight: 72.6 kg

DRUGS (3)
  1. BEXTRA [Suspect]
     Indication: MUSCLE INJURY
     Dosage: 10 MG, QD, ORAL
     Route: 048
     Dates: start: 20040924
  2. FLEXERIL [Concomitant]
  3. SINGULAIR [Concomitant]

REACTIONS (3)
  - GINGIVAL SWELLING [None]
  - STOMATITIS [None]
  - SWELLING FACE [None]
